FAERS Safety Report 4294486-3 (Version None)
Quarter: 2004Q1

REPORT INFORMATION
  Report Type: 
  Country: None (occurrence: None)
  Receive Date: 20040211
  Receipt Date: 20040202
  Transmission Date: 20041129
  Serious: Yes (Other)
  Sender: FDA-Public Use
  Company Number: NSADSS2002035555

PATIENT
  Age: 57 Year
  Sex: Male
  Weight: 79.3795 kg

DRUGS (12)
  1. REMICADE [Suspect]
     Indication: CROHN'S DISEASE
     Dosage: SEE IMAGE
     Route: 042
     Dates: start: 20010301, end: 20010301
  2. REMICADE [Suspect]
     Indication: CROHN'S DISEASE
     Dosage: SEE IMAGE
     Route: 042
     Dates: start: 20020925, end: 20020925
  3. LIPITOR [Concomitant]
  4. CHOLESTROMAN (CHOLESTEROL- AND TRIGLYCERIDE REDUCERS) [Concomitant]
  5. MULTIVITS (MULTIVIT) [Concomitant]
  6. STEROIDS (CORTISOSTEROID NOS) [Concomitant]
  7. EHCOSET (ALL OTHER THERAPEUTIC PRODUCTS) [Concomitant]
  8. COLAZAL (BALSALAZIDE SODIUM) [Concomitant]
  9. CHOLESTERMINE (COLESTYRAMINE) [Concomitant]
  10. ENTOCORT (BUDESONIDE) [Concomitant]
  11. B-12 (CYANOCOBALAMIN) [Concomitant]
  12. TESTOSTERONE [Concomitant]

REACTIONS (3)
  - ALOPECIA [None]
  - SEBORRHOEIC DERMATITIS [None]
  - SKIN DESQUAMATION [None]
